FAERS Safety Report 5109667-6 (Version None)
Quarter: 2006Q3

REPORT INFORMATION
  Report Type: 
  Country: None (occurrence: None)
  Receive Date: 20060920
  Receipt Date: 20060703
  Transmission Date: 20061208
  Serious: Yes (Hospitalization, Disabling)
  Sender: FDA-Public Use
  Company Number: CG-MERCK-0607USA00735

PATIENT
  Age: 38 Year
  Sex: Male

DRUGS (1)
  1. STROMECTOL [Suspect]
     Route: 048
     Dates: start: 20060519, end: 20060519

REACTIONS (10)
  - ABNORMAL BEHAVIOUR [None]
  - ADVERSE EVENT [None]
  - ARTHRALGIA [None]
  - BACK PAIN [None]
  - COMA [None]
  - GAIT DISTURBANCE [None]
  - HEADACHE [None]
  - HYPOTONIA [None]
  - OCULAR HYPERAEMIA [None]
  - PYREXIA [None]
